FAERS Safety Report 5493591-3 (Version None)
Quarter: 2007Q4

REPORT INFORMATION
  Report Type: 
  Country: None (occurrence: None)
  Receive Date: 20071015
  Receipt Date: 20070827
  Transmission Date: 20080405
  Serious: No
  Sender: FDA-Public Use
  Company Number: 2007SP002991

PATIENT
  Age: 65 Year
  Sex: Male
  Weight: 92.0802 kg

DRUGS (13)
  1. LUNESTA [Suspect]
     Indication: INSOMNIA
     Dosage: 3 MG;HS;ORAL; 1.5 MG;HS;ORAL; 3 MG;HS;ORAL
     Route: 048
     Dates: start: 20070823, end: 20070823
  2. LUNESTA [Suspect]
     Indication: INSOMNIA
     Dosage: 3 MG;HS;ORAL; 1.5 MG;HS;ORAL; 3 MG;HS;ORAL
     Route: 048
     Dates: start: 20070824, end: 20070824
  3. LUNESTA [Suspect]
     Indication: INSOMNIA
     Dosage: 3 MG;HS;ORAL; 1.5 MG;HS;ORAL; 3 MG;HS;ORAL
     Route: 048
     Dates: start: 20070825
  4. ISOSORBIDE DINITRATE [Concomitant]
  5. METOPROLOL [Concomitant]
  6. ESCITALOPRAM [Concomitant]
  7. WARFARIN SODIUM [Concomitant]
  8. FUROSEMIDE [Concomitant]
  9. VYTORIN [Concomitant]
  10. PREVACID [Concomitant]
  11. FEXOFENADINE [Concomitant]
  12. ASPIRIN [Concomitant]
  13. TOLTERODINE TARTRATE [Concomitant]

REACTIONS (4)
  - DYSGEUSIA [None]
  - HYPERCHLORHYDRIA [None]
  - MIDDLE INSOMNIA [None]
  - NAUSEA [None]
